FAERS Safety Report 19845826 (Version 2)
Quarter: 2021Q4

REPORT INFORMATION
  Report Type: Report from Study
  Country: US (occurrence: US)
  Receive Date: 20210916
  Receipt Date: 20211103
  Transmission Date: 20220303
  Serious: No
  Sender: FDA-Public Use
  Company Number: US-ZOGENIX INTERNATIONAL LIMITED, A WHOLLY OWNED SUBSIDIARY OF ZOGENIX, INC.-2021ZX000542

PATIENT
  Age: 7 Year
  Sex: Female
  Weight: 20.3 kg

DRUGS (5)
  1. FINTEPLA [Suspect]
     Active Substance: FENFLURAMINE
     Indication: Severe myoclonic epilepsy of infancy
     Dosage: WAS PART OF A BLINDED FINTEPLA STUDY BEFORE 13-DEC-2016
     Route: 048
     Dates: start: 20161213
  2. FINTEPLA [Suspect]
     Active Substance: FENFLURAMINE
     Route: 048
  3. POTASSIUM BROMIDE [Concomitant]
     Active Substance: POTASSIUM BROMIDE
     Indication: Product used for unknown indication
     Route: 065
  4. CANNABIDIOL [Concomitant]
     Active Substance: CANNABIDIOL
     Indication: Product used for unknown indication
     Route: 065
  5. ETHOSUXIMIDE [Concomitant]
     Active Substance: ETHOSUXIMIDE
     Indication: Product used for unknown indication
     Route: 065

REACTIONS (3)
  - No adverse event [Recovered/Resolved]
  - Hyperdynamic left ventricle [Unknown]
  - Tricuspid valve incompetence [Unknown]
